FAERS Safety Report 23876895 (Version 1)
Quarter: 2024Q2

REPORT INFORMATION
  Report Type: Spontaneous
  Country: US (occurrence: US)
  Receive Date: 20240521
  Receipt Date: 20240521
  Transmission Date: 20240716
  Serious: No
  Sender: FDA-Public Use
  Company Number: US-BIOVITRUM-2024-US-007361

PATIENT
  Age: 81 Year
  Sex: Female

DRUGS (1)
  1. VONJO [Suspect]
     Active Substance: PACRITINIB
     Indication: Myelofibrosis
     Dosage: 200 MG TWICE DAILY
     Route: 048
     Dates: start: 20230719

REACTIONS (3)
  - Back pain [Unknown]
  - Muscular weakness [Unknown]
  - Asthenia [Unknown]
